FAERS Safety Report 19813783 (Version 1)
Quarter: 2021Q3

REPORT INFORMATION
  Report Type: Spontaneous
  Country: US (occurrence: US)
  Receive Date: 20210907
  Receipt Date: 20210907
  Transmission Date: 20211014
  Serious: Yes (Hospitalization)
  Sender: FDA-Public Use
  Company Number: None

PATIENT
  Age: 24 Year
  Sex: Female
  Weight: 78.2 kg

DRUGS (1)
  1. LORLATINB 25MG [Suspect]
     Active Substance: LORLATINIB
     Indication: NEUROBLASTOMA
     Route: 048
     Dates: start: 20210802, end: 20210816

REACTIONS (3)
  - Irritability [None]
  - Insomnia [None]
  - Energy increased [None]

NARRATIVE: CASE EVENT DATE: 20210823
